FAERS Safety Report 12872429 (Version 3)
Quarter: 2017Q1

REPORT INFORMATION
  Report Type: Report from Study
  Country: US (occurrence: US)
  Receive Date: 20161021
  Receipt Date: 20170116
  Transmission Date: 20170428
  Serious: Yes (Hospitalization, Other)
  Sender: FDA-Public Use
  Company Number: US-GILEAD-2016-0239273

PATIENT
  Age: 72 Year
  Sex: Female

DRUGS (32)
  1. PROTONIX                           /00661201/ [Concomitant]
     Active Substance: OMEPRAZOLE
  2. PRADAXA [Concomitant]
     Active Substance: DABIGATRAN ETEXILATE MESYLATE
  3. TRAMADOL HCL [Concomitant]
     Active Substance: TRAMADOL HYDROCHLORIDE
  4. MEDROL [Concomitant]
     Active Substance: METHYLPREDNISOLONE
  5. ATROVENT [Concomitant]
     Active Substance: IPRATROPIUM BROMIDE
  6. ALDACTONE [Concomitant]
     Active Substance: SPIRONOLACTONE
  7. METOLAZONE. [Concomitant]
     Active Substance: METOLAZONE
  8. BACLOFEN. [Concomitant]
     Active Substance: BACLOFEN
  9. MYSOLINE [Concomitant]
     Active Substance: PRIMIDONE
  10. WELLBUTRIN [Concomitant]
     Active Substance: BUPROPION HYDROCHLORIDE
  11. AMBRISENTAN [Suspect]
     Active Substance: AMBRISENTAN
     Indication: PULMONARY HYPERTENSION
     Dosage: 10 MG, QD
     Route: 065
     Dates: start: 20150923
  12. LIPITOR [Concomitant]
     Active Substance: ATORVASTATIN CALCIUM
  13. TIKOSYN [Concomitant]
     Active Substance: DOFETILIDE
  14. PREMARIN [Concomitant]
     Active Substance: ESTROGENS, CONJUGATED
  15. ZOLOFT [Concomitant]
     Active Substance: SERTRALINE HYDROCHLORIDE
  16. NEURONTIN [Concomitant]
     Active Substance: GABAPENTIN
  17. RECLAST [Concomitant]
     Active Substance: ZOLEDRONIC ACID
  18. DEMADEX [Concomitant]
     Active Substance: TORSEMIDE
  19. LUMIGAN [Concomitant]
     Active Substance: BIMATOPROST
  20. IRON [Concomitant]
     Active Substance: IRON
  21. ASPIRIN                            /00002701/ [Concomitant]
     Active Substance: ASPIRIN
  22. TUSSIN DM [Concomitant]
     Active Substance: DEXTROMETHORPHAN HYDROBROMIDE\GUAIFENESIN
  23. SYSTANE (HYPROMELLOSE 2910 (4000 MPA.S)) [Concomitant]
     Active Substance: HYPROMELLOSE 2910 (4000 MPA.S)
  24. PROAIR HFA [Concomitant]
     Active Substance: ALBUTEROL SULFATE
  25. LORATADINE. [Concomitant]
     Active Substance: LORATADINE
  26. COREG [Concomitant]
     Active Substance: CARVEDILOL
  27. TYLENOL [Concomitant]
     Active Substance: ACETAMINOPHEN
  28. COZAAR [Concomitant]
     Active Substance: LOSARTAN POTASSIUM
  29. UPTRAVI [Concomitant]
     Active Substance: SELEXIPAG
     Dosage: 600 UG, BID
  30. ADEMPAS [Concomitant]
     Active Substance: RIOCIGUAT
     Dosage: 2.5 MG, TID
  31. NOVOLOG [Concomitant]
     Active Substance: INSULIN ASPART
  32. HYDRALAZINE HCL [Concomitant]
     Active Substance: HYDRALAZINE HYDROCHLORIDE

REACTIONS (5)
  - Polyp [Unknown]
  - Small intestinal obstruction [Recovering/Resolving]
  - Haemorrhoidal haemorrhage [Recovering/Resolving]
  - Diverticulum intestinal haemorrhagic [Recovering/Resolving]
  - Haemoglobin decreased [Recovering/Resolving]
